FAERS Safety Report 8313883-X (Version None)
Quarter: 2012Q2

REPORT INFORMATION
  Report Type: 
  Country: None (occurrence: None)
  Receive Date: 20120426
  Receipt Date: 20120417
  Transmission Date: 20120825
  Serious: Yes (Hospitalization)
  Sender: FDA-Public Use
  Company Number: US-JNJFOC-20120407955

PATIENT
  Age: 79 Year
  Sex: Female

DRUGS (2)
  1. REMICADE [Suspect]
     Indication: PRODUCT USED FOR UNKNOWN INDICATION
     Route: 042
     Dates: start: 20120222, end: 20120222
  2. REMICADE [Suspect]
     Route: 042

REACTIONS (2)
  - PNEUMONIA [None]
  - LATENT TUBERCULOSIS [None]
